FAERS Safety Report 10669229 (Version 2)
Quarter: 2015Q1

REPORT INFORMATION
  Report Type: Spontaneous
  Country: CO (occurrence: CO)
  Receive Date: 20141222
  Receipt Date: 20150107
  Transmission Date: 20150720
  Serious: Yes (Other)
  Sender: FDA-Public Use
  Company Number: CO-NOVOPROD-432891

PATIENT
  Age: 14 Year
  Sex: Male
  Weight: 33.1 kg

DRUGS (4)
  1. NORDITROPIN [Suspect]
     Active Substance: SOMATROPIN
     Dosage: 1.38 MG, QD
     Route: 058
     Dates: start: 20141211
  2. NORDITROPIN [Suspect]
     Active Substance: SOMATROPIN
     Indication: BODY HEIGHT BELOW NORMAL
     Dosage: 1.38 MG, QD, SUBCUTANEOUS IN THE THIGH
     Route: 058
     Dates: start: 20141017, end: 20141128
  3. IBUPROFEN. [Concomitant]
     Active Substance: IBUPROFEN
     Dosage: 400 GR (ACCORDING WITH REQUIREDMENTS)
     Dates: start: 20141209
  4. CEPHALEXIN                         /00145501/ [Concomitant]
     Active Substance: CEPHALEXIN
     Dosage: 500 GR (EACH 8 HOURS DURING 7 DAYS)
     Dates: start: 20141209

REACTIONS (1)
  - Fall [Not Recovered/Not Resolved]

NARRATIVE: CASE EVENT DATE: 20141128
